FAERS Safety Report 9234360 (Version 2)
Quarter: 2013Q2

REPORT INFORMATION
  Report Type: Spontaneous
  Country: US (occurrence: None)
  Receive Date: 20121031
  Receipt Date: 20130107
  Transmission Date: 20140414
  Serious: Yes (Other)
  Sender: FDA-Public Use
  Company Number: PHEH2012US012596

PATIENT
  Age: 44 Year
  Sex: Female

DRUGS (9)
  1. GILENYA [Suspect]
     Indication: MULTIPLE SCLEROSIS
     Route: 048
     Dates: start: 20110608
  2. TRILEPTAL (OXCARBAZEPINE) [Concomitant]
  3. PROZAC (FLUOXETINE HYDROCHLORIDE) [Concomitant]
  4. NEURONTIN (GABAPENTIN) [Concomitant]
  5. DYORIDE [Concomitant]
  6. DETROL (TOLTERODINE L-TARTRATE) [Concomitant]
  7. TILIBITOL [Concomitant]
  8. MIRAPEX (PRAMIPEXOLE DIHYDROCHLORIDE) TABLET [Concomitant]
  9. DIASITE [Concomitant]

REACTIONS (9)
  - Fall [None]
  - Confusional state [None]
  - Coordination abnormal [None]
  - Pain in extremity [None]
  - Muscular weakness [None]
  - Multiple sclerosis relapse [None]
  - Contusion [None]
  - VIIth nerve paralysis [None]
  - Movement disorder [None]
